FAERS Safety Report 20656201 (Version 1)
Quarter: 2022Q1

REPORT INFORMATION
  Report Type: Spontaneous
  Country: CH (occurrence: CH)
  Receive Date: 20220331
  Receipt Date: 20220331
  Transmission Date: 20220424
  Serious: Yes (Congenital Anomaly, Other)
  Sender: FDA-Public Use
  Company Number: None

PATIENT
  Age: 0 Day
  Sex: Female
  Weight: 4.9 kg

DRUGS (9)
  1. CLOTRIMAZOLE [Suspect]
     Active Substance: CLOTRIMAZOLE
     Indication: Fungal infection
     Route: 064
  2. FLUCONAZOLE [Suspect]
     Active Substance: FLUCONAZOLE
     Indication: Fungal infection
     Dosage: TREATMENT DURING THE 1ST TRIMESTER OF PREGNANCY, FORM STRENGTH: 150 MG, UNIT DOSE: 150 MG
     Route: 064
  3. ECONAZOLE NITRATE [Suspect]
     Active Substance: ECONAZOLE NITRATE
     Indication: Fungal infection
     Dosage: 150 MG EGGS AND CREAM - TREATMENT DURING THE 1ST TRIMESTER OF PREGNANCY, FORM STRENGTH: 150 MG,
     Route: 064
  4. CLOTRIMAZOLE\HEXAMIDINE DIISETHIONATE [Suspect]
     Active Substance: CLOTRIMAZOLE\HEXAMIDINE DIISETHIONATE
     Indication: Fungal infection
     Dosage: TREATMENT DURING THE 1ST TRIMESTER OF PREGNANCY
     Route: 064
  5. AMPHO-MORONAL [Suspect]
     Active Substance: AMPHOTERICIN B
     Indication: Fungal infection
     Dosage: TREATMENT DURING THE 1ST TRIMESTER OF PREGNANCY, FORM STRENGTH: 100 MG, UNIT DOSE: 100 MG
     Route: 064
  6. DEQUALINIUM CHLORIDE [Suspect]
     Active Substance: DEQUALINIUM CHLORIDE
     Indication: Fungal infection
     Dosage: TREATMENT DURING THE 1ST TRIMESTER OF PREGNANCY, FORM STRENGTH: 10 MG, UNIT DOSE: 10 MG
     Route: 064
  7. FLAGYL [Suspect]
     Active Substance: METRONIDAZOLE\METRONIDAZOLE HYDROCHLORIDE
     Indication: Fungal infection
     Dosage: TREATMENT DURING THE 1ST TRIMESTER OF PREGNANCY, FORM STRENGTH: 500 MG, UNIT DOSE: 500 MG
     Route: 064
  8. HERBALS\HOPS\VALERIAN [Suspect]
     Active Substance: HERBALS\HOPS\VALERIAN
     Indication: Fungal infection
     Dosage: TREATMENT DURING THE 1ST TRIMESTER OF PREGNANCY, FORM STRENGTH: 500 MG, UNIT DOSE: 500 MG
     Route: 064
  9. ZOLPIDEM TARTRATE [Suspect]
     Active Substance: ZOLPIDEM TARTRATE
     Indication: Fungal infection
     Dosage: TREATMENT DURING THE 1ST TRIMESTER OF PREGNANCY, FORM STRENGTH: 10 MG, UNIT DOSE: 10 MG
     Route: 064

REACTIONS (4)
  - Congenital ectopic bladder [Recovered/Resolved]
  - Laryngomalacia [Unknown]
  - Foetal macrosomia [Unknown]
  - Exposure during pregnancy [Recovered/Resolved]

NARRATIVE: CASE EVENT DATE: 20210401
